FAERS Safety Report 6239397-9 (Version None)
Quarter: 2009Q2

REPORT INFORMATION
  Report Type: 
  Country: None (occurrence: None)
  Receive Date: 20090618
  Receipt Date: 20090618
  Transmission Date: 20091009
  Serious: Yes (Other)
  Sender: FDA-Public Use
  Company Number: None

PATIENT
  Age: 44 Year
  Sex: Female
  Weight: 75.7507 kg

DRUGS (2)
  1. ZICAM NOSE SPRAY [Suspect]
     Indication: NASOPHARYNGITIS
     Dosage: ONE SPRAY UP EACH NOSTRIL 1 OR 2 A DAY
     Dates: start: 20081015, end: 20081125
  2. ZICAM NOSE SPRAY [Suspect]
     Indication: PROPHYLAXIS
     Dosage: ONE SPRAY UP EACH NOSTRIL 1 OR 2 A DAY
     Dates: start: 20081015, end: 20081125

REACTIONS (2)
  - ANOSMIA [None]
  - DYSGEUSIA [None]
